FAERS Safety Report 12574534 (Version 2)
Quarter: 2016Q3

REPORT INFORMATION
  Report Type: Spontaneous
  Country: CA (occurrence: CA)
  Receive Date: 20160720
  Receipt Date: 20160808
  Transmission Date: 20161109
  Serious: Yes (Hospitalization, Other)
  Sender: FDA-Public Use
  Company Number: CA-GLAXOSMITHKLINE-CA2015GSK016839

PATIENT
  Age: 74 Year
  Sex: Female
  Weight: 52 kg

DRUGS (10)
  1. DICETEL [Concomitant]
     Active Substance: PINAVERIUM BROMIDE
     Indication: PRODUCT USED FOR UNKNOWN INDICATION
     Dosage: UNK
  2. SALBUTAMOL [Suspect]
     Active Substance: ALBUTEROL
     Indication: PRODUCT USED FOR UNKNOWN INDICATION
     Dosage: UNK
  3. AMITRIPTYLINE [Concomitant]
     Active Substance: AMITRIPTYLINE
     Indication: PRODUCT USED FOR UNKNOWN INDICATION
  4. APO-MOMETASONE [Concomitant]
     Active Substance: MOMETASONE FUROATE
     Indication: PRODUCT USED FOR UNKNOWN INDICATION
     Dosage: UNK
  5. NOVO-SALBUTAMOL HFA [Suspect]
     Active Substance: ALBUTEROL
     Indication: PRODUCT USED FOR UNKNOWN INDICATION
     Dosage: 2 PUFF(S), UNK
  6. SALBUTAMOL [Concomitant]
     Active Substance: ALBUTEROL
     Indication: PRODUCT USED FOR UNKNOWN INDICATION
     Dosage: UNK
  7. TECTA [Concomitant]
     Active Substance: PANTOPRAZOLE MAGNESIUM
     Indication: PRODUCT USED FOR UNKNOWN INDICATION
     Dosage: UNK
  8. ZOPLICONE [Concomitant]
     Active Substance: ZOPICLONE
     Indication: PRODUCT USED FOR UNKNOWN INDICATION
  9. VOLIBRIS [Suspect]
     Active Substance: AMBRISENTAN
     Indication: PULMONARY ARTERIAL HYPERTENSION
     Dosage: 5 MG, QD
     Route: 048
     Dates: start: 20140510
  10. AMPICILLIN [Suspect]
     Active Substance: AMPICILLIN
     Indication: DENTAL OPERATION
     Dosage: UNK
     Dates: start: 2015

REACTIONS (22)
  - Abdominal pain upper [Unknown]
  - Helminthic infection [Unknown]
  - Fatigue [Unknown]
  - Gastric antral vascular ectasia [Unknown]
  - Gingival recession [Unknown]
  - Sleep disorder [Unknown]
  - Rectal haemorrhage [Unknown]
  - Weight decreased [Unknown]
  - Enamel anomaly [Unknown]
  - Product use issue [Unknown]
  - Drug interaction [Unknown]
  - Asthenia [Unknown]
  - Pain [Unknown]
  - Drug intolerance [Unknown]
  - Abdominal discomfort [Unknown]
  - Cough [Unknown]
  - Sinus congestion [Unknown]
  - Influenza [Recovered/Resolved]
  - Tooth disorder [Unknown]
  - Heart rate increased [Unknown]
  - Chest pain [Recovering/Resolving]
  - Headache [Unknown]

NARRATIVE: CASE EVENT DATE: 2015
